FAERS Safety Report 7503472-9 (Version None)
Quarter: 2011Q2

REPORT INFORMATION
  Report Type: 
  Country: None (occurrence: None)
  Receive Date: 20110525
  Receipt Date: 20110523
  Transmission Date: 20111010
  Serious: Yes (Hospitalization, Other)
  Sender: FDA-Public Use
  Company Number: US-PFIZER INC-2011030041

PATIENT
  Sex: Female

DRUGS (24)
  1. WELLBUTRIN [Concomitant]
     Indication: DEPRESSION
     Dosage: UNK
     Dates: start: 20050101, end: 20100101
  2. ULTRAM [Concomitant]
     Indication: PAIN
     Dosage: UNK
     Dates: start: 20070101, end: 20100101
  3. PROAIR HFA [Concomitant]
     Indication: ASTHMA
     Dosage: UNK
     Dates: start: 20050101
  4. CYMBALTA [Concomitant]
     Indication: DEPRESSION
     Dosage: UNK
     Dates: start: 20060101
  5. AZITHROMYCIN [Concomitant]
     Indication: INFECTION
     Dosage: UNK
     Dates: start: 20060101, end: 20090101
  6. AUGMENTIN [Concomitant]
     Indication: INFECTION
     Dosage: UNK
     Dates: start: 20060101, end: 20090101
  7. LORTAB [Concomitant]
     Indication: PAIN
     Dosage: UNK
     Dates: start: 20000101
  8. COMBIVENT [Concomitant]
     Indication: ASTHMA
     Dosage: UNK
     Dates: start: 20070101, end: 20100101
  9. XANAX [Concomitant]
     Indication: ANXIETY
     Dosage: UNK
     Dates: start: 20050101
  10. NEURONTIN [Concomitant]
     Indication: PAIN
     Dosage: UNK
     Dates: start: 20030101
  11. SOMA [Concomitant]
     Indication: PAIN
     Dosage: UNK
     Dates: start: 20050101
  12. ELAVIL [Concomitant]
     Indication: DEPRESSION
  13. MONTELUKAST [Concomitant]
     Indication: ASTHMA
     Dosage: UNK
     Dates: start: 20050101, end: 20100101
  14. LIPITOR [Concomitant]
     Indication: HYPERLIPIDAEMIA
     Dosage: UNK
     Dates: start: 20060101
  15. ZYRTEC [Concomitant]
     Indication: RHINITIS ALLERGIC
     Dosage: UNK
     Dates: start: 20060101, end: 20090101
  16. ZITHROMAX [Concomitant]
     Indication: INFECTION
     Dosage: UNK
     Dates: start: 20060101, end: 20100101
  17. FLONASE [Concomitant]
     Indication: RHINITIS ALLERGIC
     Dosage: UNK
     Dates: start: 20060101, end: 20100101
  18. TRAZODONE [Concomitant]
     Indication: SLEEP DISORDER
     Dosage: UNK
     Dates: start: 20060101, end: 20100101
  19. ELAVIL [Concomitant]
     Indication: PAIN
     Dosage: UNK
     Dates: start: 20020101, end: 20100101
  20. ADVAIR DISKUS 100/50 [Concomitant]
     Indication: ASTHMA
     Dosage: UNK
     Dates: start: 20050101
  21. XANAX [Concomitant]
     Indication: PANIC DISORDER
  22. PROMETHAZINE [Concomitant]
     Indication: NAUSEA
     Dosage: UNK
     Dates: start: 20070101, end: 20100101
  23. CHANTIX [Suspect]
     Indication: SMOKING CESSATION THERAPY
     Dosage: STARTING PACK AND CONTINUING PACK
     Dates: start: 20080101, end: 20100201
  24. NASONEX [Concomitant]
     Indication: RHINITIS ALLERGIC
     Dosage: UNK
     Dates: start: 20070101, end: 20090101

REACTIONS (8)
  - DEPRESSION [None]
  - HALLUCINATION [None]
  - PANIC DISORDER [None]
  - LOSS OF CONSCIOUSNESS [None]
  - SUICIDAL IDEATION [None]
  - ANXIETY [None]
  - HOMICIDAL IDEATION [None]
  - BIPOLAR DISORDER [None]
